FAERS Safety Report 14771149 (Version 1)
Quarter: 2018Q2

REPORT INFORMATION
  Report Type: Spontaneous
  Country: US (occurrence: US)
  Receive Date: 20180417
  Receipt Date: 20180417
  Transmission Date: 20180711
  Serious: No
  Sender: FDA-Public Use
  Company Number: US-ALLERGAN-1722269US

PATIENT
  Age: 84 Year
  Sex: Female

DRUGS (1)
  1. LUMIGAN [Suspect]
     Active Substance: BIMATOPROST
     Indication: GLAUCOMA
     Dosage: 2 GTT, UNK
     Route: 047
     Dates: start: 20170520, end: 20170520

REACTIONS (5)
  - Product storage error [Unknown]
  - Visual impairment [Not Recovered/Not Resolved]
  - Drug dose omission [Unknown]
  - Ocular hyperaemia [Recovered/Resolved]
  - Lacrimation increased [Recovered/Resolved]

NARRATIVE: CASE EVENT DATE: 201705
